FAERS Safety Report 5286399-5 (Version None)
Quarter: 2007Q2

REPORT INFORMATION
  Report Type: 
  Country: None (occurrence: None)
  Receive Date: 20070404
  Receipt Date: 20070326
  Transmission Date: 20071010
  Serious: Yes (Other)
  Sender: FDA-Public Use
  Company Number: BH-AMGEN-UK215421

PATIENT
  Sex: Female
  Weight: 79.5 kg

DRUGS (5)
  1. NEUPOGEN [Suspect]
     Indication: CHEMOTHERAPY
     Route: 058
     Dates: start: 20070311
  2. NORGESIC FORTE [Suspect]
     Dates: start: 20070311, end: 20070319
  3. TAXOL [Concomitant]
  4. ENDOXAN [Concomitant]
  5. EPIRUBICIN [Concomitant]

REACTIONS (10)
  - BACK PAIN [None]
  - BONE PAIN [None]
  - CHEST DISCOMFORT [None]
  - DYSPNOEA [None]
  - HEADACHE [None]
  - HYPERHIDROSIS [None]
  - LIMB DISCOMFORT [None]
  - MUSCLE SPASMS [None]
  - PAIN [None]
  - PYREXIA [None]
